FAERS Safety Report 11858413 (Version 1)
Quarter: 2015Q4

REPORT INFORMATION
  Report Type: Other
  Country: GB (occurrence: GB)
  Receive Date: 20151222
  Receipt Date: 20151222
  Transmission Date: 20160305
  Serious: Yes (Hospitalization)
  Sender: FDA-Public Use
  Company Number: GB-TARO PHARMACEUTICALS USA.,INC-2015SUN02302

PATIENT
  Age: 83 Year
  Sex: Female

DRUGS (12)
  1. BUPRENORPHINE. [Concomitant]
     Active Substance: BUPRENORPHINE
  2. WARFARIN [Suspect]
     Active Substance: WARFARIN
     Indication: ATRIAL FIBRILLATION
     Dosage: 29 MG, WEEKLY (5MG ON A MONDAY AND 4 MG REST OF THE WEEK)
     Route: 048
     Dates: end: 20151209
  3. LACTULOSE SOLUTION [Concomitant]
  4. DIGOXIN. [Concomitant]
     Active Substance: DIGOXIN
  5. NICORANDIL [Concomitant]
     Active Substance: NICORANDIL
  6. PRAVASTATIN [Concomitant]
     Active Substance: PRAVASTATIN\PRAVASTATIN SODIUM
  7. TRIMETHOPRIM. [Concomitant]
     Active Substance: TRIMETHOPRIM
     Indication: URINARY TRACT INFECTION
  8. SALMETEROL [Concomitant]
     Active Substance: SALMETEROL
  9. ISOSORBIDE. [Concomitant]
     Active Substance: ISOSORBIDE
  10. IPRATROPIUM [Concomitant]
     Active Substance: IPRATROPIUM
  11. OMEPRAZOLE. [Concomitant]
     Active Substance: OMEPRAZOLE
  12. SERTRALINE [Concomitant]
     Active Substance: SERTRALINE HYDROCHLORIDE

REACTIONS (4)
  - Fall [Unknown]
  - Haemoglobin decreased [Unknown]
  - Haematoma [Recovered/Resolved]
  - Muscle haemorrhage [None]

NARRATIVE: CASE EVENT DATE: 20151202
